FAERS Safety Report 13087545 (Version 1)
Quarter: 2017Q1

REPORT INFORMATION
  Report Type: Spontaneous
  Country: FR (occurrence: FR)
  Receive Date: 20170105
  Receipt Date: 20170105
  Transmission Date: 20170428
  Serious: Yes (Hospitalization)
  Sender: FDA-Public Use
  Company Number: FR-UCBSA-2017000223

PATIENT
  Age: 29 Year
  Sex: Male

DRUGS (4)
  1. DEPAKINE [Suspect]
     Active Substance: VALPROATE SODIUM
     Indication: EPILEPSY
     Dosage: 1.5 G, 2X/DAY (BID)
  2. KEPPRA [Suspect]
     Active Substance: LEVETIRACETAM
     Indication: EPILEPSY
     Dosage: 500 MG, 2X/DAY (BID)
  3. DEPAKINE [Suspect]
     Active Substance: VALPROATE SODIUM
     Dosage: 75000 MG, TOTAL (150 TABLETS OF 500MG)
     Route: 048
     Dates: start: 20161211, end: 20161211
  4. KEPPRA [Suspect]
     Active Substance: LEVETIRACETAM
     Dosage: 30000 MG, TOTAL (60 TABLETS OF 500MG)
     Route: 048
     Dates: start: 20161211, end: 20161211

REACTIONS (3)
  - Intentional overdose [Unknown]
  - Toxicity to various agents [Recovered/Resolved]
  - Altered state of consciousness [Recovering/Resolving]

NARRATIVE: CASE EVENT DATE: 201612
